FAERS Safety Report 17787372 (Version 3)
Quarter: 2020Q2

REPORT INFORMATION
  Report Type: Report from Study
  Country: IN (occurrence: IN)
  Receive Date: 20200514
  Receipt Date: 20200527
  Transmission Date: 20200714
  Serious: Yes (Hospitalization)
  Sender: FDA-Public Use
  Company Number: NVSC2020IN130004

PATIENT
  Age: 58 Year
  Sex: Male

DRUGS (2)
  1. TIMOLET [Concomitant]
     Indication: PROPHYLAXIS
     Dosage: UNK
     Route: 065
  2. TRAVATAN [Suspect]
     Active Substance: TRAVOPROST
     Indication: GLAUCOMA
     Dosage: QD
     Route: 065
     Dates: start: 20171207

REACTIONS (10)
  - Oropharyngeal pain [Recovering/Resolving]
  - Anosmia [Recovering/Resolving]
  - Dyspnoea [Recovering/Resolving]
  - Cough [Recovering/Resolving]
  - Visual impairment [Not Recovered/Not Resolved]
  - Eye pain [Not Recovered/Not Resolved]
  - Asthenopia [Not Recovered/Not Resolved]
  - Pyrexia [Recovering/Resolving]
  - Coronavirus infection [Recovering/Resolving]
  - Intraocular pressure increased [Unknown]

NARRATIVE: CASE EVENT DATE: 20200503
